FAERS Safety Report 23930292 (Version 1)
Quarter: 2024Q2

REPORT INFORMATION
  Report Type: Spontaneous
  Country: US (occurrence: None)
  Receive Date: 20240602
  Receipt Date: 20240602
  Transmission Date: 20240716
  Serious: No
  Sender: FDA-Public Use
  Company Number: 2024A114799

PATIENT
  Sex: Female

DRUGS (1)
  1. BUDESONIDE\FORMOTEROL [Suspect]
     Active Substance: BUDESONIDE\FORMOTEROL
     Dosage: 160 UG
     Route: 055

REACTIONS (7)
  - Chest discomfort [Unknown]
  - Cough [Unknown]
  - Wrong technique in device usage process [Unknown]
  - Product taste abnormal [Unknown]
  - Product label confusion [Unknown]
  - Intentional product misuse [Unknown]
  - Product regimen confusion [Unknown]
